FAERS Safety Report 5265042-5 (Version None)
Quarter: 2007Q1

REPORT INFORMATION
  Report Type: 
  Country: None (occurrence: None)
  Receive Date: 20070314
  Receipt Date: 20070309
  Transmission Date: 20070707
  Serious: Yes (Hospitalization)
  Sender: FDA-Public Use
  Company Number: DE-ABBOTT-07P-062-0358505-01

PATIENT
  Sex: Female
  Weight: 95 kg

DRUGS (9)
  1. HUMIRA [Suspect]
     Indication: RHEUMATOID ARTHRITIS
     Route: 058
     Dates: start: 20040108, end: 20070217
  2. ATENOLOL [Concomitant]
     Indication: HYPERTENSION
     Dates: start: 20040101
  3. CANDESARTAN CILEXETIL [Concomitant]
     Indication: HYPERTENSION
     Dates: start: 20020101
  4. ESOMEPRAZOLE MAGNESIUM [Concomitant]
     Indication: GASTROOESOPHAGEAL REFLUX DISEASE
     Dates: start: 20000901
  5. PREDNISONE [Concomitant]
     Indication: RHEUMATOID ARTHRITIS
     Dates: start: 20070206
  6. LEKOVIT CA [Concomitant]
     Indication: OSTEOPOROSIS PROPHYLAXIS
     Dates: start: 20070118
  7. SULFORIDAZINE [Concomitant]
     Indication: HEPATIC ENZYME INCREASED
     Dates: start: 20060101
  8. SULFORIDAZINE [Concomitant]
     Indication: BLOOD CHOLESTEROL INCREASED
  9. METHOTREXATE [Concomitant]
     Indication: RHEUMATOID ARTHRITIS
     Dates: start: 20070124

REACTIONS (1)
  - AMNESTIC DISORDER [None]
